FAERS Safety Report 16208103 (Version 1)
Quarter: 2019Q2

REPORT INFORMATION
  Report Type: Spontaneous
  Country: FR (occurrence: FR)
  Receive Date: 20190417
  Receipt Date: 20190417
  Transmission Date: 20190711
  Serious: Yes (Death, Other)
  Sender: FDA-Public Use
  Company Number: FR-BAYER-2019-074785

PATIENT
  Age: 72 Year
  Sex: Male
  Weight: 94 kg

DRUGS (4)
  1. NEXAVAR [Suspect]
     Active Substance: SORAFENIB
     Indication: HEPATOCELLULAR CARCINOMA
     Dosage: 400 MG, BID
     Dates: start: 201704
  2. STIVARGA [Suspect]
     Active Substance: REGORAFENIB
     Dosage: 80 MG, QD
     Dates: start: 201710
  3. STIVARGA [Suspect]
     Active Substance: REGORAFENIB
     Dosage: 120 MG, QD
     Dates: start: 201711
  4. STIVARGA [Suspect]
     Active Substance: REGORAFENIB
     Dosage: 160 MG, QD
     Dates: start: 201712

REACTIONS (6)
  - Death [Fatal]
  - Diarrhoea [None]
  - Off label use [None]
  - Asthenia [None]
  - Hepatic lesion [None]
  - Peritoneal lesion [None]

NARRATIVE: CASE EVENT DATE: 2017
